FAERS Safety Report 10011650 (Version 2)
Quarter: 2014Q1

REPORT INFORMATION
  Report Type: Spontaneous
  Country: US (occurrence: US)
  Receive Date: 20140314
  Receipt Date: 20140314
  Transmission Date: 20141002
  Serious: No
  Sender: FDA-Public Use
  Company Number: US-ENDO PHARMACEUTICALS INC.-OXYC20130032

PATIENT
  Sex: Male

DRUGS (4)
  1. OXYCODONE HCL 30MG [Suspect]
     Indication: PAIN
     Dosage: 30 MG
     Route: 048
     Dates: start: 201305, end: 201307
  2. OXYCODONE HCL 30MG [Suspect]
     Dosage: 30 MG
     Route: 048
     Dates: start: 201307
  3. ANDRODERM [Concomitant]
     Indication: PRODUCT USED FOR UNKNOWN INDICATION
     Dosage: UNK
     Route: 062
  4. CARISOPRODOL [Concomitant]
     Indication: PRODUCT USED FOR UNKNOWN INDICATION
     Dosage: UNK
     Route: 048

REACTIONS (10)
  - Dysarthria [Not Recovered/Not Resolved]
  - Tinnitus [Unknown]
  - Confusional state [Not Recovered/Not Resolved]
  - Chills [Not Recovered/Not Resolved]
  - Anxiety [Not Recovered/Not Resolved]
  - Headache [Unknown]
  - Body temperature increased [Unknown]
  - Withdrawal syndrome [Unknown]
  - Drug hypersensitivity [Unknown]
  - Drug ineffective [Unknown]
